FAERS Safety Report 6685229-4 (Version None)
Quarter: 2010Q2

REPORT INFORMATION
  Report Type: 
  Country: None (occurrence: None)
  Receive Date: 20100416
  Receipt Date: 20100414
  Transmission Date: 20101027
  Serious: Yes (Life-Threatening)
  Sender: FDA-Public Use
  Company Number: UG-ABBOTT-10P-165-0638886-00

PATIENT
  Age: 1 Year
  Sex: Female

DRUGS (7)
  1. ALUVIA TABLETS [Suspect]
     Indication: HIV INFECTION
     Route: 048
     Dates: start: 20091130
  2. AZT [Concomitant]
     Indication: HIV INFECTION
     Route: 048
     Dates: start: 20091130, end: 20091208
  3. AZT [Concomitant]
     Dates: end: 20100108
  4. COTRIMAXAZOLE [Concomitant]
     Indication: DRUG USE FOR UNKNOWN INDICATION
     Route: 048
     Dates: start: 20091130, end: 20091208
  5. COTRIMAXAZOLE [Concomitant]
     Dates: end: 20100108
  6. LAMIVUDINE (EPIVIR HBV) [Concomitant]
     Indication: DRUG USE FOR UNKNOWN INDICATION
     Route: 048
     Dates: start: 20091130, end: 20091208
  7. LAMIVUDINE (EPIVIR HBV) [Concomitant]
     Dates: end: 20100108

REACTIONS (1)
  - NEUTROPENIA [None]
